FAERS Safety Report 4811729-5 (Version None)
Quarter: 2005Q4

REPORT INFORMATION
  Report Type: 
  Country: None (occurrence: None)
  Receive Date: 20051025
  Receipt Date: 20051011
  Transmission Date: 20060501
  Serious: Yes (Death, Life-Threatening)
  Sender: FDA-Public Use
  Company Number: 217622

PATIENT
  Age: 65 Year
  Sex: Male

DRUGS (15)
  1. MABTHERA (RITUXIMAB) CONC FOR SOLUTION FOR INFUSION [Suspect]
     Indication: BURKITT'S LYMPHOMA
     Dosage: 600 MG, INTRAVENOUS
     Route: 042
     Dates: start: 20050705
  2. VINCRISTINE [Suspect]
     Indication: BURKITT'S LYMPHOMA
     Dosage: 2 MG, INTRAVENOUS
     Route: 042
     Dates: start: 20050727, end: 20050801
  3. METHOTREXATE [Suspect]
     Indication: BURKITT'S LYMPHOMA
     Dosage: SEE IMAGE
     Dates: start: 20050727, end: 20050801
  4. METHOTREXATE [Suspect]
     Indication: BURKITT'S LYMPHOMA
     Dosage: SEE IMAGE
     Dates: start: 20050729
  5. DOXORUBICIN HYDROCHLORIDE [Suspect]
     Indication: BURKITT'S LYMPHOMA
     Dosage: 90 MG, INTRAVENOUS
     Route: 042
     Dates: start: 20050728
  6. CYCLOPHOSPHAMIDE [Suspect]
     Indication: BURKITT'S LYMPHOMA
     Dosage: 1900 MG, INTRAVENOUS
     Route: 042
     Dates: start: 20050728
  7. PREDNISONE [Suspect]
     Indication: BURKITT'S LYMPHOMA
     Dosage: 90 MG,
     Dates: start: 20050727
  8. VANCOMYCINE (VANCOMYCIN HYDROCHLORIDE) [Concomitant]
  9. ZOVIRAX [Concomitant]
  10. AMPHOTERICINE (AMPHOTERICIN B) [Concomitant]
  11. TOBRAMYCIN [Concomitant]
  12. PRIMAXIN [Concomitant]
  13. FOSFOMYCINE (FOSFOMYCIN) [Concomitant]
  14. NORADRENALINE (NOREPINEPHRINE BITARTRATE) [Concomitant]
  15. VOLUVEN (HETASTARCH) [Concomitant]

REACTIONS (24)
  - AORTIC VALVE INCOMPETENCE [None]
  - BLOOD COUNT ABNORMAL [None]
  - CARDIAC FAILURE [None]
  - CARDIAC VALVE VEGETATION [None]
  - CARDIOGENIC SHOCK [None]
  - CARDIOMEGALY [None]
  - CARDIOPULMONARY FAILURE [None]
  - CHOLESTASIS [None]
  - CYANOSIS [None]
  - DUODENAL ULCER HAEMORRHAGE [None]
  - ENDOCARDITIS [None]
  - HEPATIC FAILURE [None]
  - LUNG DISORDER [None]
  - LUNG INFECTION PSEUDOMONAL [None]
  - MITRAL VALVE INCOMPETENCE [None]
  - MUCOSAL INFLAMMATION [None]
  - MULTI-ORGAN FAILURE [None]
  - NERVOUS SYSTEM DISORDER [None]
  - POST PROCEDURAL COMPLICATION [None]
  - POST PROCEDURAL DIARRHOEA [None]
  - RENAL FAILURE ACUTE [None]
  - RESPIRATORY DISTRESS [None]
  - RESPIRATORY MONILIASIS [None]
  - SEPTIC SHOCK [None]
